FAERS Safety Report 21833517 (Version 9)
Quarter: 2023Q4

REPORT INFORMATION
  Report Type: Report from Study
  Country: US (occurrence: US)
  Receive Date: 20230107
  Receipt Date: 20231006
  Transmission Date: 20240109
  Serious: Yes (Hospitalization, Other)
  Sender: FDA-Public Use
  Company Number: US-002147023-NVSC2023US003335

PATIENT
  Age: 79 Year
  Sex: Female

DRUGS (3)
  1. LEQVIO [Suspect]
     Active Substance: INCLISIRAN SODIUM
     Indication: Product used for unknown indication
     Dosage: UNK
     Route: 058
     Dates: start: 20221102
  2. LEQVIO [Suspect]
     Active Substance: INCLISIRAN SODIUM
     Dosage: UNK
     Route: 065
  3. LEQVIO [Suspect]
     Active Substance: INCLISIRAN SODIUM
     Dosage: UNK
     Route: 058

REACTIONS (16)
  - Pneumonia [Unknown]
  - Pulmonary oedema [Unknown]
  - Nephrolithiasis [Unknown]
  - Bronchitis [Unknown]
  - Malaise [Unknown]
  - Tongue ulceration [Unknown]
  - Illness [Unknown]
  - General physical health deterioration [Unknown]
  - Ligament sprain [Unknown]
  - Gait inability [Unknown]
  - Arthritis [Unknown]
  - Back pain [Unknown]
  - Muscular weakness [Unknown]
  - Blood glucose decreased [Unknown]
  - Sinusitis [Unknown]
  - Injection site reaction [Unknown]

NARRATIVE: CASE EVENT DATE: 20221101
